FAERS Safety Report 7207072-X (Version None)
Quarter: 2011Q1

REPORT INFORMATION
  Report Type: 
  Country: None (occurrence: None)
  Receive Date: 20110103
  Receipt Date: 20101230
  Transmission Date: 20110831
  Serious: Yes (Hospitalization)
  Sender: FDA-Public Use
  Company Number: B0691574A

PATIENT
  Sex: Male

DRUGS (2)
  1. REQUIP [Suspect]
     Dosage: 8MG THREE TIMES PER DAY
     Route: 048
     Dates: start: 20080101, end: 20100819
  2. DEPAMIDE [Concomitant]
     Route: 065
     Dates: start: 20090101

REACTIONS (9)
  - AGGRESSION [None]
  - ABNORMAL BEHAVIOUR [None]
  - SLEEP DISORDER [None]
  - NIGHTMARE [None]
  - HALLUCINATION [None]
  - OBSESSIVE-COMPULSIVE DISORDER [None]
  - AGITATION [None]
  - FALL [None]
  - LABILE BLOOD PRESSURE [None]
